FAERS Safety Report 6239641-8 (Version None)
Quarter: 2009Q2

REPORT INFORMATION
  Report Type: 
  Country: None (occurrence: None)
  Receive Date: 20090622
  Receipt Date: 20090610
  Transmission Date: 20091009
  Serious: Yes (Death)
  Sender: FDA-Public Use
  Company Number: NZ-BAXTER-2009BH008288

PATIENT
  Age: 17 Year

DRUGS (1)
  1. SUPRANE [Suspect]
     Indication: GENERAL ANAESTHESIA
     Route: 055
     Dates: start: 20090501, end: 20090501

REACTIONS (2)
  - ACUTE HEPATIC FAILURE [None]
  - DEATH [None]
